FAERS Safety Report 15104398 (Version 1)
Quarter: 2018Q3

REPORT INFORMATION
  Report Type: Spontaneous
  Country: AU (occurrence: AU)
  Receive Date: 20180703
  Receipt Date: 20180703
  Transmission Date: 20181010
  Serious: Yes (Other)
  Sender: FDA-Public Use
  Company Number: AU-PFIZER INC-2018265370

PATIENT
  Sex: Female

DRUGS (1)
  1. PREMARIN [Suspect]
     Active Substance: ESTROGENS, CONJUGATED
     Dosage: UNK

REACTIONS (8)
  - Feeling of body temperature change [Unknown]
  - Suicidal ideation [Unknown]
  - Insomnia [Unknown]
  - Aggression [Unknown]
  - Anger [Unknown]
  - Fatigue [Unknown]
  - Emotional disorder [Unknown]
  - Crying [Unknown]
